FAERS Safety Report 7879557-4 (Version None)
Quarter: 2011Q4

REPORT INFORMATION
  Report Type: 
  Country: None (occurrence: None)
  Receive Date: 20111101
  Receipt Date: 20111024
  Transmission Date: 20120403
  Serious: Yes (Other)
  Sender: FDA-Public Use
  Company Number: US-GLAXOSMITHKLINE-A0950257A

PATIENT
  Age: 48 Year
  Sex: Female

DRUGS (2)
  1. ALTABAX [Suspect]
     Indication: IMPETIGO
     Dosage: 2APP UNKNOWN
     Route: 061
     Dates: start: 20111013, end: 20111001
  2. ZYRTEC [Concomitant]

REACTIONS (5)
  - RASH MACULAR [None]
  - ANAPHYLACTIC REACTION [None]
  - OROPHARYNGEAL SWELLING [None]
  - INFLUENZA LIKE ILLNESS [None]
  - SOMNOLENCE [None]
